FAERS Safety Report 6694147-7 (Version None)
Quarter: 2010Q2

REPORT INFORMATION
  Report Type: 
  Country: None (occurrence: None)
  Receive Date: 20100423
  Receipt Date: 20091003
  Transmission Date: 20101027
  Serious: No
  Sender: FDA-Public Use
  Company Number: A0810660A

PATIENT
  Sex: Male

DRUGS (2)
  1. FLONASE [Suspect]
     Indication: DRUG USE FOR UNKNOWN INDICATION
     Route: 045
  2. DIURETIC [Concomitant]

REACTIONS (1)
  - BLOOD GLUCOSE INCREASED [None]
